FAERS Safety Report 11193156 (Version 1)
Quarter: 2015Q2

REPORT INFORMATION
  Report Type: Spontaneous
  Country: US (occurrence: US)
  Receive Date: 20150616
  Receipt Date: 20150616
  Transmission Date: 20150821
  Serious: Yes (Death, Other)
  Sender: FDA-Public Use
  Company Number: US-JNJFOC-20150606653

PATIENT

DRUGS (3)
  1. AMPHETAMINE [Suspect]
     Active Substance: AMPHETAMINE
     Indication: PRODUCT USED FOR UNKNOWN INDICATION
     Route: 065
  2. COCAINE [Suspect]
     Active Substance: COCAINE
     Indication: PRODUCT USED FOR UNKNOWN INDICATION
     Route: 065
  3. TRAMADOL HYDROCHLORIDE. [Suspect]
     Active Substance: TRAMADOL HYDROCHLORIDE
     Indication: PRODUCT USED FOR UNKNOWN INDICATION
     Route: 065

REACTIONS (9)
  - Adverse event [Unknown]
  - Drug abuse [Unknown]
  - Vomiting [Unknown]
  - Seizure [Unknown]
  - Tachycardia [Unknown]
  - Sedation [Unknown]
  - Death [Fatal]
  - Medication error [Unknown]
  - Suicide attempt [Unknown]
